FAERS Safety Report 8276651-3 (Version None)
Quarter: 2012Q2

REPORT INFORMATION
  Report Type: 
  Country: None (occurrence: None)
  Receive Date: 20120412
  Receipt Date: 20120404
  Transmission Date: 20120825
  Serious: Yes (Other)
  Sender: FDA-Public Use
  Company Number: US-BAYER-2012-013043

PATIENT
  Age: 35 Year
  Sex: Female
  Weight: 49.887 kg

DRUGS (1)
  1. YAZ [Suspect]
     Dosage: UNK
     Route: 048
     Dates: start: 20060801, end: 20100701

REACTIONS (2)
  - THROMBOSIS [None]
  - PULMONARY EMBOLISM [None]
